FAERS Safety Report 8920157 (Version 1)
Quarter: 2012Q4

REPORT INFORMATION
  Report Type: 
  Country: AU (occurrence: AU)
  Receive Date: 20121122
  Receipt Date: 20121122
  Transmission Date: 20130627
  Serious: Yes (Other)
  Sender: FDA-Public Use
  Company Number: AU-ROCHE-219103

PATIENT
  Age: 70 Year
  Sex: Male

DRUGS (7)
  1. CEFTRIAXONE SODIUM [Suspect]
     Indication: INFECTION PARASITIC
     Route: 048
     Dates: start: 19960305, end: 19960313
  2. GENTAMICIN SULPHATE [Suspect]
     Indication: INFECTION PARASITIC
     Route: 065
     Dates: start: 19960306, end: 19960312
  3. HEPARIN SODIUM [Suspect]
     Indication: ARTERIAL THROMBOSIS
     Route: 058
     Dates: start: 19960305, end: 19960315
  4. METHYLDOPA [Suspect]
     Indication: ESSENTIAL HYPERTENSION
     Route: 048
  5. ASPIRIN [Suspect]
     Indication: ARTERIAL THROMBOSIS
     Route: 048
  6. AUGMENTIN [Suspect]
     Indication: INFECTION PARASITIC
     Route: 048
     Dates: start: 19960313, end: 19960314
  7. PANADEINE CO [Suspect]
     Indication: PAIN
     Route: 048

REACTIONS (2)
  - Deafness [Not Recovered/Not Resolved]
  - Renal impairment [Not Recovered/Not Resolved]
